FAERS Safety Report 8063554-2 (Version None)
Quarter: 2012Q1

REPORT INFORMATION
  Report Type: 
  Country: None (occurrence: None)
  Receive Date: 20120123
  Receipt Date: 20120111
  Transmission Date: 20120608
  Serious: Yes (Hospitalization)
  Sender: FDA-Public Use
  Company Number: FR-UCBSA-049513

PATIENT
  Age: 63 Year
  Sex: Male

DRUGS (15)
  1. ULTIVA [Concomitant]
  2. HEPARIN [Concomitant]
     Dates: start: 20111102, end: 20111106
  3. CEFTAZIDIME SODIUM [Concomitant]
     Dates: start: 20111105, end: 20111107
  4. FLAGYL [Concomitant]
     Dates: start: 20111105, end: 20111107
  5. NEXIUM [Suspect]
     Dosage: 20 MG
     Route: 048
     Dates: start: 20111030, end: 20111115
  6. NOREPINEPHRINE BITARTRATE [Concomitant]
  7. ASPIRIN [Concomitant]
     Dates: start: 20111102
  8. IMIPENEM AND CILASTATIN SODIUM [Concomitant]
     Dates: start: 20111107
  9. PIPERACILLIN/TAZOBACTAM [Concomitant]
     Dates: end: 20111105
  10. ZYVOX [Concomitant]
  11. MOTILIUM [Concomitant]
     Dates: start: 20111031
  12. CIPROFLOXACIN [Concomitant]
     Dates: end: 20111107
  13. VITAMIN K TAB [Concomitant]
     Dates: start: 20111107
  14. VIMPAT [Suspect]
     Route: 048
     Dates: start: 20111103
  15. FLUCONAZOLE [Concomitant]
     Dates: start: 20111105

REACTIONS (1)
  - THROMBOCYTOPENIA [None]
